FAERS Safety Report 7449990-3 (Version None)
Quarter: 2011Q2

REPORT INFORMATION
  Report Type: 
  Country: None (occurrence: None)
  Receive Date: 20110428
  Receipt Date: 20110428
  Transmission Date: 20111010
  Serious: Yes (Hospitalization, Other)
  Sender: FDA-Public Use
  Company Number: None

PATIENT
  Age: 48 Year
  Sex: Female
  Weight: 73 kg

DRUGS (4)
  1. CITALOPRAM HYDROBROMIDE [Suspect]
     Indication: POST-TRAUMATIC STRESS DISORDER
     Dosage: 60 MG HS PO
     Route: 048
     Dates: start: 20060216, end: 20110323
  2. CITALOPRAM HYDROBROMIDE [Suspect]
     Indication: DEPRESSION
     Dosage: 60 MG HS PO
     Route: 048
     Dates: start: 20060216, end: 20110323
  3. MIRTAZAPINE [Suspect]
     Indication: POST-TRAUMATIC STRESS DISORDER
     Dosage: 15 MG HS PO
     Route: 048
     Dates: start: 20110318
  4. MIRTAZAPINE [Suspect]
     Indication: DEPRESSION
     Dosage: 15 MG HS PO
     Route: 048
     Dates: start: 20110318

REACTIONS (5)
  - WRIST FRACTURE [None]
  - PYREXIA [None]
  - SEROTONIN SYNDROME [None]
  - DIZZINESS [None]
  - FALL [None]
